FAERS Safety Report 4286134-3 (Version None)
Quarter: 2004Q1

REPORT INFORMATION
  Report Type: 
  Country: None (occurrence: None)
  Receive Date: 20040115
  Receipt Date: 20030512
  Transmission Date: 20041129
  Serious: No
  Sender: FDA-Public Use
  Company Number: 1673077A

PATIENT
  Age: 9 Year
  Sex: Female
  Weight: 54.4316 kg

DRUGS (1)
  1. CHILDREN'S MOTRIN ORANGE CHEWABLE TABLET [Suspect]
     Indication: TOOTHACHE
     Dosage: 250 MG, TID, PO; 4 DOSES
     Route: 048
     Dates: start: 20030508, end: 20030509

REACTIONS (1)
  - HYPERSENSITIVITY [None]
